FAERS Safety Report 6877209-0 (Version None)
Quarter: 2010Q3

REPORT INFORMATION
  Report Type: 
  Country: None (occurrence: None)
  Receive Date: 20100716
  Receipt Date: 20100713
  Transmission Date: 20110219
  Serious: Yes (Life-Threatening, Hospitalization)
  Sender: FDA-Public Use
  Company Number: 2010022431

PATIENT
  Sex: Male

DRUGS (6)
  1. HUMATE-P [Suspect]
     Indication: IMMUNOSUPPRESSANT DRUG THERAPY
     Dosage: NI, 2 ML 1X/MINUTE, 2 ML 1X/MINUTE INTRAVENOUS (NOT OTHERWISE SPECIFIED), INTRAVENOUS (NOT OTHERWISE
     Route: 042
     Dates: start: 20070201, end: 20091101
  2. FEIBA [Concomitant]
  3. VANCOMYCIN [Concomitant]
  4. AMIKIN [Concomitant]
  5. OXACILLIN [Concomitant]
  6. FOLIC ACID [Concomitant]

REACTIONS (3)
  - GENERAL PHYSICAL HEALTH DETERIORATION [None]
  - HEADACHE [None]
  - PYREXIA [None]
